FAERS Safety Report 9869950 (Version 7)
Quarter: 2014Q1

REPORT INFORMATION
  Report Type: Report from Study
  Country: US (occurrence: US)
  Receive Date: 20140205
  Receipt Date: 20140310
  Transmission Date: 20141002
  Serious: Yes (Death, Life-Threatening, Hospitalization, Other)
  Sender: FDA-Public Use
  Company Number: US-BAYER-2013-116348

PATIENT
  Age: 70 Year
  Sex: Male
  Weight: 64 kg

DRUGS (12)
  1. ALPHARADIN [Suspect]
     Indication: HORMONE-REFRACTORY PROSTATE CANCER
     Dosage: 3852KBQ
     Route: 042
     Dates: start: 20130729, end: 20130729
  2. ALPHARADIN [Suspect]
     Indication: METASTASES TO BONE
     Dosage: 3678 KBQ
     Route: 042
     Dates: start: 20130911, end: 20130911
  3. ALPHARADIN [Suspect]
     Indication: HORMONE-REFRACTORY PROSTATE CANCER
     Dosage: 3737KBQ
     Route: 042
     Dates: start: 20131014, end: 20131014
  4. ALPHARADIN [Suspect]
     Indication: HORMONE-REFRACTORY PROSTATE CANCER
     Dosage: 3419KBQ
     Route: 042
     Dates: start: 20131107, end: 20131107
  5. ALPHARADIN [Suspect]
     Indication: HORMONE-REFRACTORY PROSTATE CANCER
     Dosage: 3315KBQ
     Route: 042
     Dates: start: 20131210, end: 20131210
  6. ALPHARADIN [Suspect]
     Indication: HORMONE-REFRACTORY PROSTATE CANCER
     Dosage: 2997KBQ
     Route: 042
     Dates: start: 20140113, end: 20140113
  7. ELIGARD [Concomitant]
     Indication: PROSTATE CANCER
     Dosage: DAILY DOSE 30 MG
     Route: 058
     Dates: start: 20061101, end: 20121114
  8. ABIRATERONE [Concomitant]
     Indication: PROSTATE CANCER
     Dosage: DAILY DOSE 1 G
     Route: 048
     Dates: start: 20110811, end: 20120719
  9. RED BLOOD CELLS, CONCENTRATED [Concomitant]
     Indication: ANAEMIA
     Dosage: 2 U, ONCE
     Route: 042
     Dates: start: 20131009, end: 20131009
  10. RED BLOOD CELLS, CONCENTRATED [Concomitant]
     Indication: ANAEMIA
     Dosage: 2 U, ONCE
     Route: 042
     Dates: start: 20131101, end: 20131101
  11. RED BLOOD CELLS, CONCENTRATED [Concomitant]
     Indication: ANAEMIA
     Dosage: 2 U, ONCE
     Route: 042
     Dates: start: 20131119, end: 20131119
  12. RED BLOOD CELLS, CONCENTRATED [Concomitant]
     Indication: ANAEMIA
     Dosage: 2 U, ONCE
     Route: 042
     Dates: start: 20110108, end: 20140108

REACTIONS (4)
  - Bronchial carcinoma [Fatal]
  - Thrombocytopenia [Not Recovered/Not Resolved]
  - Brain mass [Not Recovered/Not Resolved]
  - Pneumonia [Recovered/Resolved]
